FAERS Safety Report 7056938-2 (Version None)
Quarter: 2010Q4

REPORT INFORMATION
  Report Type: 
  Country: None (occurrence: None)
  Receive Date: 20101021
  Receipt Date: 20101021
  Transmission Date: 20110411
  Serious: Yes (Hospitalization)
  Sender: FDA-Public Use
  Company Number: None

PATIENT
  Sex: Female
  Weight: 58.6 kg

DRUGS (1)
  1. HYDROXYCHLOROQUINE 200 MG [Suspect]
     Indication: GLIOBLASTOMA MULTIFORME
     Dosage: 600MG DAILY ORAL
     Route: 048
     Dates: start: 20100831, end: 20101015

REACTIONS (1)
  - JAUNDICE [None]
